FAERS Safety Report 24905664 (Version 1)
Quarter: 2025Q1

REPORT INFORMATION
  Report Type: Report from Study
  Country: US (occurrence: US)
  Receive Date: 20250130
  Receipt Date: 20250130
  Transmission Date: 20250409
  Serious: No
  Sender: HRA PHARMA
  Company Number: US-ORG100014127-2024000193

PATIENT
  Age: 62 Year
  Sex: Female

DRUGS (10)
  1. METOPIRONE [Suspect]
     Active Substance: METYRAPONE
     Indication: Ectopic ACTH syndrome
     Dosage: TWO CAPSULES BY MOUTH TWICE DAILY
     Dates: start: 20240613
  2. KETOCONAZOLE TAB 200MG [Concomitant]
     Indication: Product used for unknown indication
  3. LANREOTIDE INJ 120/.5ML [Concomitant]
     Indication: Product used for unknown indication
  4. LORAZEPAM [Concomitant]
     Active Substance: LORAZEPAM
     Indication: Product used for unknown indication
  5. MAGNESIUM TAB 250MG [Concomitant]
     Indication: Product used for unknown indication
  6. MELATONIN TAB 10MG [Concomitant]
     Indication: Product used for unknown indication
  7. METFORMIN ER TAB 1000MG; [Concomitant]
     Indication: Product used for unknown indication
  8. POTASSIUM TAB 99MG [Concomitant]
     Indication: Product used for unknown indication
  9. PROMETHAZINE SUP 25MG [Concomitant]
     Indication: Product used for unknown indication
  10. SPIRONOLACTONE [Concomitant]
     Active Substance: SPIRONOLACTONE
     Indication: Product used for unknown indication

REACTIONS (1)
  - Off label use [Not Recovered/Not Resolved]

NARRATIVE: CASE EVENT DATE: 20240613
